FAERS Safety Report 14320880 (Version 2)
Quarter: 2017Q4

REPORT INFORMATION
  Report Type: Report from Study
  Country: US (occurrence: US)
  Receive Date: 20171223
  Receipt Date: 20171229
  Transmission Date: 20180321
  Serious: Yes (Hospitalization, Other)
  Sender: FDA-Public Use
  Company Number: US-BRISTOL-MYERS SQUIBB COMPANY-BMS-2017-116408

PATIENT
  Age: 55 Year
  Sex: Male
  Weight: 127.9 kg

DRUGS (1)
  1. NIVOLUMAB [Suspect]
     Active Substance: NIVOLUMAB
     Indication: RENAL CELL CARCINOMA
     Dosage: 240 MG, Q2WK
     Route: 065
     Dates: start: 20171206

REACTIONS (2)
  - Back pain [Not Recovered/Not Resolved]
  - Retroperitoneal haemorrhage [Recovered/Resolved]

NARRATIVE: CASE EVENT DATE: 20171214
